FAERS Safety Report 24782416 (Version 1)
Quarter: 2024Q4

REPORT INFORMATION
  Report Type: Spontaneous
  Country: ES (occurrence: ES)
  Receive Date: 20241227
  Receipt Date: 20241227
  Transmission Date: 20250115
  Serious: Yes (Other)
  Sender: AMGEN
  Company Number: ES-AMGEN-ESPSP2024250408

PATIENT
  Age: 73 Year
  Sex: Female

DRUGS (4)
  1. BEVACIZUMAB [Suspect]
     Active Substance: BEVACIZUMAB
     Indication: Endometrial cancer
     Dosage: UNK
     Route: 065
     Dates: end: 202302
  2. CISPLATIN [Concomitant]
     Active Substance: CISPLATIN
     Indication: Endometrial cancer
     Dosage: UNK UNK, QWK, FIVE CYCLES
     Dates: end: 202104
  3. CARBOPLATIN [Concomitant]
     Active Substance: CARBOPLATIN
     Indication: Endometrial cancer
     Dosage: UNK
     Dates: start: 202207
  4. PACLITAXEL [Concomitant]
     Active Substance: PACLITAXEL
     Indication: Endometrial cancer
     Dosage: UNK
     Dates: start: 202207

REACTIONS (12)
  - Immune-mediated lung disease [Unknown]
  - Pancreatitis [Unknown]
  - Immune-mediated hypothyroidism [Unknown]
  - Immune-mediated hyperthyroidism [Unknown]
  - Age-related macular degeneration [Unknown]
  - Neuropathy peripheral [Unknown]
  - Vitritis [Unknown]
  - Punctate keratitis [Unknown]
  - Keratic precipitates [Unknown]
  - Iris adhesions [Unknown]
  - Off label use [Unknown]
  - Arthralgia [Recovering/Resolving]

NARRATIVE: CASE EVENT DATE: 20230101
